FAERS Safety Report 8049464-5 (Version None)
Quarter: 2012Q1

REPORT INFORMATION
  Report Type: 
  Country: None (occurrence: None)
  Receive Date: 20120117
  Receipt Date: 20120116
  Transmission Date: 20120608
  Serious: Yes (Other)
  Sender: FDA-Public Use
  Company Number: IT-PFIZER INC-2011269152

PATIENT
  Age: 77 Year
  Sex: Female

DRUGS (6)
  1. ZOLOFT [Suspect]
     Dosage: 50 MG, DAILY
     Route: 048
     Dates: start: 20111024, end: 20111027
  2. LASIX [Concomitant]
     Dosage: 50 MG, UNK
     Route: 048
  3. ZOLOFT [Suspect]
     Indication: DEPRESSION
     Dosage: 25 MG, DAILY
     Route: 048
     Dates: start: 20111018, end: 20111023
  4. ASPIRIN [Concomitant]
     Dosage: 75 MG, UNK
     Route: 048
  5. LANSOPRAZOLE [Concomitant]
     Dosage: 30 MG, UNK
     Route: 048
  6. LEVOTHYROXINE SODIUM [Concomitant]
     Dosage: UNK

REACTIONS (5)
  - FEELING HOT [None]
  - DISORIENTATION [None]
  - HALLUCINATION [None]
  - SOPOR [None]
  - HYPERHIDROSIS [None]
